FAERS Safety Report 9410751 (Version 2)
Quarter: 2013Q3

REPORT INFORMATION
  Report Type: Spontaneous
  Country: US (occurrence: US)
  Receive Date: 20130719
  Receipt Date: 20130724
  Transmission Date: 20140515
  Serious: Yes (Death, Other)
  Sender: FDA-Public Use
  Company Number: US-009507513-1307USA007062

PATIENT
  Sex: Male

DRUGS (2)
  1. TEMODAR [Suspect]
     Indication: BRAIN NEOPLASM
     Dosage: 300 MG, QD
     Route: 048
     Dates: start: 20121119
  2. HALDOL [Concomitant]
     Dosage: UNK

REACTIONS (1)
  - Brain neoplasm malignant [Fatal]
